FAERS Safety Report 17735369 (Version 1)
Quarter: 2020Q2

REPORT INFORMATION
  Report Type: Report from Study
  Country: DE (occurrence: DE)
  Receive Date: 20200501
  Receipt Date: 20200501
  Transmission Date: 20200714
  Serious: Yes (Hospitalization)
  Sender: FDA-Public Use
  Company Number: DE-MYLANLABS-2020M1043160

PATIENT
  Age: 35 Year
  Sex: Female

DRUGS (2)
  1. IBUPROFEN. [Suspect]
     Active Substance: IBUPROFEN
     Indication: MULTIPLE SCLEROSIS RELAPSE
     Dosage: 1200 MILLIGRAM, QD
     Route: 048
     Dates: start: 20191101, end: 201912
  2. PLEGRIDY [Suspect]
     Active Substance: PEGINTERFERON BETA-1A
     Indication: MULTIPLE SCLEROSIS
     Dosage: 125 MICROGRAM, 14 DAYS
     Route: 058
     Dates: start: 20160120

REACTIONS (4)
  - Stress [Unknown]
  - Multiple sclerosis relapse [Recovered/Resolved]
  - Hepatic failure [Recovered/Resolved]
  - Overdose [Unknown]

NARRATIVE: CASE EVENT DATE: 201911
